FAERS Safety Report 17043479 (Version 1)
Quarter: 2019Q4

REPORT INFORMATION
  Report Type: Spontaneous
  Country: US (occurrence: US)
  Receive Date: 20191118
  Receipt Date: 20191118
  Transmission Date: 20200122
  Serious: No
  Sender: FDA-Public Use
  Company Number: US-THERAPEUTICSMD-2019TMD02711

PATIENT
  Age: 70 Year
  Sex: Female
  Weight: 52.61 kg

DRUGS (5)
  1. BIJUVA [Suspect]
     Active Substance: ESTRADIOL\PROGESTERONE
     Indication: NIGHT SWEATS
  2. BIJUVA [Suspect]
     Active Substance: ESTRADIOL\PROGESTERONE
     Indication: BONE DENSITY ABNORMAL
  3. LISINOPRIL. [Concomitant]
     Active Substance: LISINOPRIL
     Dosage: 2.5 MG, AS NEEDED
  4. ^ACAVELLA^ [Concomitant]
  5. BIJUVA [Suspect]
     Active Substance: ESTRADIOL\PROGESTERONE
     Indication: INSOMNIA
     Dosage: 1 CAPSULES, 1X/DAY
     Route: 048
     Dates: start: 20190720, end: 20190810

REACTIONS (2)
  - Blood pressure increased [Recovering/Resolving]
  - Tinnitus [Recovering/Resolving]

NARRATIVE: CASE EVENT DATE: 20190808
